FAERS Safety Report 6610690-0 (Version None)
Quarter: 2010Q1

REPORT INFORMATION
  Report Type: 
  Country: None (occurrence: None)
  Receive Date: 20100302
  Receipt Date: 20100223
  Transmission Date: 20100710
  Serious: Yes (Hospitalization)
  Sender: FDA-Public Use
  Company Number: A0847076A

PATIENT
  Sex: Female
  Weight: 90.9 kg

DRUGS (1)
  1. ROSIGLITAZONE [Suspect]
     Route: 048

REACTIONS (5)
  - ANXIETY [None]
  - CONDITION AGGRAVATED [None]
  - HEART RATE INCREASED [None]
  - ILL-DEFINED DISORDER [None]
  - MYOCARDIAL INFARCTION [None]
